FAERS Safety Report 15638869 (Version 1)
Quarter: 2018Q4

REPORT INFORMATION
  Report Type: Spontaneous
  Country: US (occurrence: US)
  Receive Date: 20181120
  Receipt Date: 20181120
  Transmission Date: 20190205
  Serious: No
  Sender: FDA-Public Use
  Company Number: US-PERRIGO-18US005885

PATIENT
  Age: 52 Year
  Sex: Female
  Weight: 113.38 kg

DRUGS (5)
  1. OMEPRAZOLE. [Concomitant]
     Active Substance: OMEPRAZOLE
     Indication: GASTROOESOPHAGEAL REFLUX DISEASE
     Dosage: UNK
     Route: 048
  2. CEVIMELINE. [Concomitant]
     Active Substance: CEVIMELINE
     Indication: SJOGREN^S SYNDROME
     Dosage: UNK
     Route: 065
  3. TIZANIDINE. [Concomitant]
     Active Substance: TIZANIDINE
     Indication: MUSCLE RELAXANT THERAPY
     Dosage: UNK
     Route: 048
  4. PROMETHAZINE [Concomitant]
     Active Substance: PROMETHAZINE\PROMETHAZINE HYDROCHLORIDE
     Indication: NAUSEA
     Dosage: UNK
     Route: 048
  5. POLYETHYLENE GLYCOL 3350. [Suspect]
     Active Substance: POLYETHYLENE GLYCOL 3350
     Indication: CONSTIPATION
     Dosage: 17 G, BID
     Route: 048
     Dates: start: 20180515, end: 20180529

REACTIONS (5)
  - Dry mouth [Recovering/Resolving]
  - Swollen tongue [Recovering/Resolving]
  - Incorrect product administration duration [Recovered/Resolved]
  - Inappropriate schedule of product administration [Recovered/Resolved]
  - Tongue dry [Recovering/Resolving]

NARRATIVE: CASE EVENT DATE: 20180515
